FAERS Safety Report 6264391-1 (Version None)
Quarter: 2009Q3

REPORT INFORMATION
  Report Type: 
  Country: None (occurrence: None)
  Receive Date: 20090710
  Receipt Date: 20090701
  Transmission Date: 20100115
  Serious: Yes (Other)
  Sender: FDA-Public Use
  Company Number: B0581741A

PATIENT
  Age: 64 Year
  Sex: Female

DRUGS (5)
  1. SERETIDE [Suspect]
     Indication: COUGH
     Dosage: 250MCG TWICE PER DAY
     Route: 055
     Dates: start: 20080711
  2. PRAVASTATIN [Concomitant]
     Route: 048
  3. ONON [Concomitant]
     Indication: COUGH
     Route: 048
  4. TAKEPRON [Concomitant]
     Indication: GASTRITIS
     Route: 048
  5. CHINESE MEDICINE [Concomitant]
     Route: 048

REACTIONS (4)
  - ANGIOEDEMA [None]
  - ERYTHEMA [None]
  - PAIN [None]
  - VEIN PAIN [None]
